FAERS Safety Report 19018974 (Version 1)
Quarter: 2021Q1

REPORT INFORMATION
  Report Type: Spontaneous
  Country: US (occurrence: US)
  Receive Date: 20210317
  Receipt Date: 20210317
  Transmission Date: 20210420
  Serious: No
  Sender: FDA-Public Use
  Company Number: None

PATIENT
  Age: 65 Year
  Sex: Male

DRUGS (9)
  1. CETIRIZINE HCL [Concomitant]
     Active Substance: CETIRIZINE HYDROCHLORIDE
  2. DIPHENHYDRAMINE 50 MG/ML VIAL [Concomitant]
  3. NEULASTA [Concomitant]
     Active Substance: PEGFILGRASTIM
  4. FAMOTIDINE 20 MG/2 ML VIAL [Concomitant]
  5. PALONOSETRON 0.25 MG ? FIVE ML [Concomitant]
  6. PACLITAXEL 100 MG/16.7 ML VIAL [Suspect]
     Active Substance: PACLITAXEL
     Indication: LUNG CARCINOMA CELL TYPE UNSPECIFIED STAGE 0
     Dosage: ?          OTHER FREQUENCY:EVERY 21 DAYS;?
     Route: 042
  7. PACLITAXEL 100 MG/16.7 ML VIAL [Concomitant]
  8. CARBOPLATIN 50 MG/5 ML VIAL [Suspect]
     Active Substance: CARBOPLATIN
     Dosage: ?          OTHER FREQUENCY:EVERY 21 DAYS;?
     Route: 042
  9. NASACORT ALLERGY 24HR [Concomitant]
     Active Substance: TRIAMCINOLONE ACETONIDE

REACTIONS (1)
  - Hospice care [None]

NARRATIVE: CASE EVENT DATE: 20210315
